FAERS Safety Report 14248257 (Version 2)
Quarter: 2017Q4

REPORT INFORMATION
  Report Type: Report from Study
  Country: DE (occurrence: DE)
  Receive Date: 20171204
  Receipt Date: 20171214
  Transmission Date: 20180321
  Serious: Yes (Other)
  Sender: FDA-Public Use
  Company Number: PHHY2017DE175844

PATIENT
  Sex: Male
  Weight: 100 kg

DRUGS (12)
  1. EXJADE [Suspect]
     Active Substance: DEFERASIROX
     Indication: MYELODYSPLASTIC SYNDROME
     Dosage: 3 DF (360 MG) (10.8 MG/KG BODYWEIGHT), QD
     Route: 065
     Dates: start: 20170720
  2. FLUDARABINE [Suspect]
     Active Substance: FLUDARABINE PHOSPHATE
     Indication: PRODUCT USED FOR UNKNOWN INDICATION
     Dosage: 60 OT, QD
     Route: 065
     Dates: start: 20170830, end: 20170902
  3. PANTOZOL [Concomitant]
     Active Substance: PANTOPRAZOLE SODIUM
     Indication: PRODUCT USED FOR UNKNOWN INDICATION
     Dosage: 40 OT, QD (1-0-0)
     Route: 065
     Dates: start: 201709
  4. MELPHALAN. [Suspect]
     Active Substance: MELPHALAN
     Indication: PRODUCT USED FOR UNKNOWN INDICATION
     Dosage: 200 OT, QD
     Route: 065
     Dates: start: 20170904, end: 20170904
  5. MMF [Concomitant]
     Active Substance: MYCOPHENOLATE MOFETIL
     Indication: PRODUCT USED FOR UNKNOWN INDICATION
     Dosage: 1500 OT, TID (1-1-1)
     Route: 065
     Dates: start: 201709
  6. CYTARABINE. [Suspect]
     Active Substance: CYTARABINE
     Indication: PRODUCT USED FOR UNKNOWN INDICATION
     Dosage: 4000 UNK, QD
     Route: 065
     Dates: start: 20170830, end: 20170902
  7. VALACICLOVIR [Concomitant]
     Active Substance: VALACYCLOVIR HYDROCHLORIDE
     Indication: PRODUCT USED FOR UNKNOWN INDICATION
     Dosage: 1000 OT, BID (1-0-1)
     Route: 065
     Dates: start: 200709
  8. TOREM [Concomitant]
     Active Substance: TORSEMIDE
     Indication: ATRIAL FIBRILLATION
     Dosage: 10 OT, QD (1-0-0)
     Route: 065
     Dates: start: 201709
  9. COTRIM [Concomitant]
     Active Substance: SULFAMETHOXAZOLE\TRIMETHOPRIM
     Indication: PRODUCT USED FOR UNKNOWN INDICATION
     Dosage: 960 OT, QD (1-0-0) (MON-WED-FRI)
     Route: 065
     Dates: start: 201709
  10. METOPROLOL. [Concomitant]
     Active Substance: METOPROLOL
     Indication: ATRIAL FIBRILLATION
     Dosage: 47.5 OT, QD (1-0-0)
     Route: 065
     Dates: start: 201709
  11. DIGITOXIN [Concomitant]
     Active Substance: DIGITOXIN
     Indication: ATRIAL FIBRILLATION
     Dosage: 0.07 OT, QD (1-0-0)
     Route: 065
  12. SANDIMMUN [Concomitant]
     Active Substance: CYCLOSPORINE
     Indication: PRODUCT USED FOR UNKNOWN INDICATION
     Dosage: 450 OT, BID (1-0-1)
     Route: 065
     Dates: start: 201709

REACTIONS (6)
  - Mucosal inflammation [Recovered/Resolved]
  - Venoocclusive disease [Recovered/Resolved]
  - Acute graft versus host disease in skin [Recovered/Resolved]
  - Staphylococcal infection [Recovered/Resolved]
  - Diarrhoea [Recovered/Resolved]
  - Dysphagia [Recovered/Resolved]

NARRATIVE: CASE EVENT DATE: 201708
